FAERS Safety Report 5199494-6 (Version None)
Quarter: 2006Q4

REPORT INFORMATION
  Report Type: 
  Country: None (occurrence: None)
  Receive Date: 20061229
  Receipt Date: 20061226
  Transmission Date: 20070319
  Serious: Yes (Life-Threatening, Hospitalization)
  Sender: FDA-Public Use
  Company Number: TPG2005A00010

PATIENT
  Age: 32 Year
  Sex: Female

DRUGS (2)
  1. ENANTONE-GYN MONATSDEPOT (LEUPROLIDE ACETATE) (3.75 MILLIGRAM, INJECTI [Suspect]
     Indication: ENDOMETRIOSIS
     Dosage: 3.75 MG (3.75 MG, 1 IN 1 M), SUBCUTANEOUS
     Route: 058
     Dates: start: 19980101, end: 19980101
  2. ENANTONE-GYN MONATSDEPOT (LEUPROLIDE ACETATE) (3.75 MILLIGRAM, INJECTI [Suspect]
     Indication: ENDOMETRIOSIS
     Dosage: 3.75 MG (3.75 MG, 1 IN 1 M), SUBCUTANEOUS
     Route: 058
     Dates: start: 20040201, end: 20040601

REACTIONS (56)
  - ANAEMIA [None]
  - APATHY [None]
  - ARTHRALGIA [None]
  - ASTHENIA [None]
  - BALANCE DISORDER [None]
  - BEDRIDDEN [None]
  - BLOOD CORTICOTROPHIN DECREASED [None]
  - BLOOD CORTISOL INCREASED [None]
  - BLOOD POTASSIUM INCREASED [None]
  - BRADYCARDIA [None]
  - CARDIOVASCULAR DISORDER [None]
  - CEREBELLAR ATAXIA [None]
  - CHRONIC FATIGUE SYNDROME [None]
  - CONDITION AGGRAVATED [None]
  - COORDINATION ABNORMAL [None]
  - CREATINE URINE ABNORMAL [None]
  - CREATININE RENAL CLEARANCE DECREASED [None]
  - DEHYDRATION [None]
  - DEHYDROEPIANDROSTERONE DECREASED [None]
  - DIARRHOEA [None]
  - DISTURBANCE IN ATTENTION [None]
  - DIZZINESS [None]
  - DRY SKIN [None]
  - DYSARTHRIA [None]
  - ELECTROLYTE IMBALANCE [None]
  - FATIGUE [None]
  - GAIT DISTURBANCE [None]
  - GENERAL PHYSICAL HEALTH DETERIORATION [None]
  - HOT FLUSH [None]
  - HYPERCHOLESTEROLAEMIA [None]
  - HYPOCALCAEMIA [None]
  - HYPOTENSION [None]
  - INFECTION [None]
  - INSOMNIA [None]
  - IRON DEFICIENCY [None]
  - LETHARGY [None]
  - LEUKOCYTOSIS [None]
  - MUSCULAR WEAKNESS [None]
  - OEDEMA MUCOSAL [None]
  - OESTRADIOL DECREASED [None]
  - PARTNER STRESS [None]
  - PHOTOSENSITIVITY REACTION [None]
  - POLYURIA [None]
  - QUADRIPARESIS [None]
  - RASH [None]
  - RAYNAUD'S PHENOMENON [None]
  - ROSACEA [None]
  - SINUS DISORDER [None]
  - SINUS POLYP [None]
  - SKIN EXFOLIATION [None]
  - SOMATISATION DISORDER [None]
  - TACHYCARDIA [None]
  - THROMBOCYTHAEMIA [None]
  - URINE OSMOLARITY INCREASED [None]
  - VASCULITIS [None]
  - WEIGHT DECREASED [None]
